FAERS Safety Report 17648769 (Version 9)
Quarter: 2024Q2

REPORT INFORMATION
  Report Type: Spontaneous
  Country: ES (occurrence: None)
  Receive Date: 20200409
  Receipt Date: 20240510
  Transmission Date: 20240716
  Serious: Yes (Hospitalization)
  Sender: FDA-Public Use
  Company Number: 2020SE46822

PATIENT
  Age: 46 Year
  Sex: Female
  Weight: 63.6 kg

DRUGS (33)
  1. ESOMEPRAZOLE [Suspect]
     Active Substance: ESOMEPRAZOLE
     Indication: Oesophagitis
     Dosage: SPORADICALLY TAKEN, ALTHOUGH IT WAS TAKEN IN THE LAST 48 H.
     Route: 048
     Dates: start: 20191216
  2. ESOMEPRAZOLE [Suspect]
     Active Substance: ESOMEPRAZOLE
     Indication: Oesophagitis
     Dosage: SPORADICALLY TAKEN, ALTHOUGH IT WAS TAKEN IN THE LAST 48 H.
     Route: 048
     Dates: start: 20200210
  3. ASCORBIC ACID [Suspect]
     Active Substance: ASCORBIC ACID
     Indication: Product used for unknown indication
     Dosage: UNKNOWN (FOR 1 DAY)
     Route: 065
     Dates: start: 20200128
  4. CHLORPHENIRAMINE MALEATE [Suspect]
     Active Substance: CHLORPHENIRAMINE MALEATE
     Indication: Product used for unknown indication
     Dosage: UNKNOWN
     Route: 065
     Dates: start: 20200128
  5. DOXAZOSIN MESYLATE [Suspect]
     Active Substance: DOXAZOSIN MESYLATE
     Indication: Hypertension
     Dosage: RARELY TAKEN
     Route: 065
     Dates: start: 20180706
  6. EBASTINE [Suspect]
     Active Substance: EBASTINE
     Indication: Influenza
     Dosage: UNKNOWN
     Route: 065
     Dates: start: 20191216
  7. EBASTINE [Suspect]
     Active Substance: EBASTINE
     Indication: Influenza
     Dosage: UNKNOWN
     Route: 065
     Dates: start: 20200210
  8. LOPERAMIDE HYDROCHLORIDE [Suspect]
     Active Substance: LOPERAMIDE HYDROCHLORIDE
     Indication: Diarrhoea
     Dosage: UNKNOWN
     Route: 065
     Dates: start: 20200128
  9. RUTIN [Suspect]
     Active Substance: RUTIN
     Indication: Product used for unknown indication
     Dosage: UNKNOWN
     Route: 030
  10. ASCORBIC ACID\ASPIRIN [Suspect]
     Active Substance: ASCORBIC ACID\ASPIRIN
     Indication: Abdominal pain upper
     Dosage: UNKNOWN
     Route: 030
  11. METAMIZOLE [Suspect]
     Active Substance: METAMIZOLE
     Indication: Pyrexia
     Dosage: UNKNOWN
     Route: 030
  12. ROBAXIN [Suspect]
     Active Substance: METHOCARBAMOL
     Indication: Muscle spasms
     Dosage: TAKEN ON CERTAIN OCCASIONS
     Route: 065
     Dates: start: 20191122
  13. OLMESARTAN MEDOXOMIL [Suspect]
     Active Substance: OLMESARTAN MEDOXOMIL
     Indication: Product used for unknown indication
     Dosage: UNKNOWN
     Route: 065
     Dates: start: 20190114
  14. ACETAMINOPHEN [Suspect]
     Active Substance: ACETAMINOPHEN
     Indication: Product used for unknown indication
     Dosage: 1G / EVERY 8H
     Route: 065
     Dates: start: 201912
  15. ACETAMINOPHEN [Suspect]
     Active Substance: ACETAMINOPHEN
     Indication: Abdominal pain upper
     Dosage: 1G / EVERY 8H
     Route: 065
     Dates: start: 201912
  16. ACETAMINOPHEN [Suspect]
     Active Substance: ACETAMINOPHEN
     Indication: Influenza
     Dosage: 1G / EVERY 8H
     Route: 065
     Dates: start: 201912
  17. ACETAMINOPHEN [Suspect]
     Active Substance: ACETAMINOPHEN
     Indication: Pyrexia
     Dosage: 1G / EVERY 8H
     Route: 065
     Dates: start: 201912
  18. ACETAMINOPHEN [Suspect]
     Active Substance: ACETAMINOPHEN
     Indication: Product used for unknown indication
     Dosage: 1G / EVERY 8H (SEVERAL DAYS)
     Route: 065
     Dates: start: 20200128
  19. ACETAMINOPHEN [Suspect]
     Active Substance: ACETAMINOPHEN
     Indication: Abdominal pain upper
     Dosage: 1G / EVERY 8H (SEVERAL DAYS)
     Route: 065
     Dates: start: 20200128
  20. ACETAMINOPHEN [Suspect]
     Active Substance: ACETAMINOPHEN
     Indication: Influenza
     Dosage: 1G / EVERY 8H (SEVERAL DAYS)
     Route: 065
     Dates: start: 20200128
  21. ACETAMINOPHEN [Suspect]
     Active Substance: ACETAMINOPHEN
     Indication: Pyrexia
     Dosage: 1G / EVERY 8H (SEVERAL DAYS)
     Route: 065
     Dates: start: 20200128
  22. MAXALT [Suspect]
     Active Substance: RIZATRIPTAN BENZOATE
     Indication: Product used for unknown indication
     Dosage: RARELY TAKEN
     Route: 065
     Dates: start: 20180706
  23. TOLVAPTAN [Suspect]
     Active Substance: TOLVAPTAN
     Indication: Congenital cystic kidney disease
     Dosage: UNKNOWN
     Route: 065
     Dates: start: 201903, end: 20200115
  24. TOLVAPTAN [Suspect]
     Active Substance: TOLVAPTAN
     Indication: Congenital cystic kidney disease
     Route: 065
     Dates: start: 201903, end: 20200115
  25. ACETAMINOPHEN\CAFFEINE\TAURINE\TRAMADOL HYDROCHLORIDE [Suspect]
     Active Substance: ACETAMINOPHEN\CAFFEINE\TAURINE\TRAMADOL HYDROCHLORIDE
     Indication: Product used for unknown indication
     Dosage: UNKNOWN
     Route: 065
  26. ACETAMINOPHEN\CAFFEINE\TAURINE\TRAMADOL HYDROCHLORIDE [Suspect]
     Active Substance: ACETAMINOPHEN\CAFFEINE\TAURINE\TRAMADOL HYDROCHLORIDE
     Indication: Influenza
     Dosage: UNKNOWN
     Route: 065
  27. ACETAMINOPHEN\CAFFEINE\TAURINE\TRAMADOL HYDROCHLORIDE [Suspect]
     Active Substance: ACETAMINOPHEN\CAFFEINE\TAURINE\TRAMADOL HYDROCHLORIDE
     Indication: Product used for unknown indication
     Dosage: UNKNOWN
     Route: 065
     Dates: start: 201912
  28. ACETAMINOPHEN\CAFFEINE\TAURINE\TRAMADOL HYDROCHLORIDE [Suspect]
     Active Substance: ACETAMINOPHEN\CAFFEINE\TAURINE\TRAMADOL HYDROCHLORIDE
     Indication: Influenza
     Dosage: UNKNOWN
     Route: 065
     Dates: start: 201912
  29. DIPYRONE [Suspect]
     Active Substance: DIPYRONE
     Indication: Product used for unknown indication
     Route: 030
  30. DIPYRONE [Suspect]
     Active Substance: DIPYRONE
     Indication: Pyrexia
     Route: 030
  31. DIPYRONE [Suspect]
     Active Substance: DIPYRONE
     Indication: Abdominal pain upper
     Route: 030
  32. CALCIUM GLUCONATE [Suspect]
     Active Substance: CALCIUM GLUCONATE
  33. DIPHENHYDRAMINE [Suspect]
     Active Substance: DIPHENHYDRAMINE

REACTIONS (13)
  - Gallbladder polyp [Unknown]
  - Influenza [Recovered/Resolved]
  - Rhinorrhoea [Recovered/Resolved]
  - Cough [Recovered/Resolved]
  - Pyrexia [Recovered/Resolved]
  - Liver disorder [Recovered/Resolved]
  - Muscle spasms [Recovered/Resolved]
  - Oesophagitis [Recovered/Resolved]
  - Abdominal pain upper [Recovered/Resolved]
  - Aspartate aminotransferase increased [Recovered/Resolved]
  - Alanine aminotransferase increased [Recovered/Resolved]
  - Vomiting [Recovered/Resolved]
  - Diarrhoea [Recovered/Resolved]

NARRATIVE: CASE EVENT DATE: 20191122
